FAERS Safety Report 10449852 (Version 2)
Quarter: 2014Q4

REPORT INFORMATION
  Report Type: Spontaneous
  Country: US (occurrence: US)
  Receive Date: 20140912
  Receipt Date: 20141211
  Transmission Date: 20150528
  Serious: No
  Sender: FDA-Public Use
  Company Number: US-INCYTE CORPORATION-2014IN002118

PATIENT
  Age: 72 Year
  Sex: Male

DRUGS (9)
  1. LISINOPRIL. [Concomitant]
     Active Substance: LISINOPRIL
  2. LEVOTHYROXINE [Concomitant]
     Active Substance: LEVOTHYROXINE
  3. ALLOPURINOL. [Concomitant]
     Active Substance: ALLOPURINOL
  4. JAKAFI [Suspect]
     Active Substance: RUXOLITINIB
     Dosage: 10 MG, BID
     Route: 048
     Dates: start: 20140627
  5. JAKAFI [Suspect]
     Active Substance: RUXOLITINIB
     Dosage: 10 MG, QD
     Route: 048
  6. OMEPRAZOLE. [Concomitant]
     Active Substance: OMEPRAZOLE
  7. GEMFIBROZIL. [Concomitant]
     Active Substance: GEMFIBROZIL
  8. LOSARTAN [Concomitant]
     Active Substance: LOSARTAN
  9. COLCRYS [Concomitant]
     Active Substance: COLCHICINE

REACTIONS (2)
  - Therapeutic response unexpected [Unknown]
  - Fatigue [Unknown]

NARRATIVE: CASE EVENT DATE: 20140722
